FAERS Safety Report 18274744 (Version 1)
Quarter: 2020Q3

REPORT INFORMATION
  Report Type: Spontaneous
  Country: CZ (occurrence: CZ)
  Receive Date: 20200916
  Receipt Date: 20200916
  Transmission Date: 20201103
  Serious: Yes (Life-Threatening, Hospitalization)
  Sender: FDA-Public Use
  Company Number: CZ-BAYER-2020-190263

PATIENT
  Age: 68 Year
  Sex: Male

DRUGS (4)
  1. VEROSPIRON [Concomitant]
     Active Substance: SPIRONOLACTONE
     Dosage: 25 MG, QD
  2. NEXAVAR [Suspect]
     Active Substance: SORAFENIB
     Indication: HEPATOCELLULAR CARCINOMA
     Dosage: 600 MG (400 MG IN THE MORNING AND 200 MG AT NIGHT)
     Route: 048
     Dates: start: 20200730, end: 20200821
  3. HELICID [OMEPRAZOLE] [Concomitant]
     Active Substance: OMEPRAZOLE
     Dosage: 20 MG, BID
  4. MAGNOSOLV [Concomitant]
     Active Substance: MAGNESIUM CARBONATE\MAGNESIUM OXIDE
     Dosage: 1?0?1 INTO GLASS OF WATER

REACTIONS (2)
  - Hypochloraemia [Recovering/Resolving]
  - Hyponatraemia [Recovering/Resolving]

NARRATIVE: CASE EVENT DATE: 20200821
